FAERS Safety Report 5152879-6 (Version None)
Quarter: 2006Q4

REPORT INFORMATION
  Report Type: 
  Country: None (occurrence: None)
  Receive Date: 20061113
  Receipt Date: 20061113
  Transmission Date: 20070319
  Serious: Yes (Life-Threatening, Hospitalization)
  Sender: FDA-Public Use
  Company Number: None

PATIENT
  Sex: Female
  Weight: 61.6892 kg

DRUGS (1)
  1. PROPAFENONE HYDROCHLORIDE [Suspect]
     Indication: ATRIAL FIBRILLATION
     Dosage: 600MG AS NEEDED MOUTH
     Route: 048
     Dates: start: 20061008

REACTIONS (3)
  - APPARENT LIFE THREATENING EVENT [None]
  - CONVULSION [None]
  - LOSS OF CONSCIOUSNESS [None]
